FAERS Safety Report 9121452 (Version 2)
Quarter: 2013Q2

REPORT INFORMATION
  Report Type: Spontaneous
  Country: FR (occurrence: FR)
  Receive Date: 20130225
  Receipt Date: 20130521
  Transmission Date: 20140414
  Serious: Yes (Hospitalization)
  Sender: FDA-Public Use
  Company Number: PHHY2013FR017996

PATIENT
  Age: 66 Year
  Sex: Male
  Weight: 75 kg

DRUGS (13)
  1. ONBREZ [Suspect]
     Indication: CHRONIC OBSTRUCTIVE PULMONARY DISEASE
     Dosage: 1 DF, QD
     Dates: start: 20121009, end: 20130201
  2. MIFLONIL [Concomitant]
     Dosage: UNK
  3. PLAVIX [Concomitant]
  4. LANSOPRAZOLE [Concomitant]
  5. DOMPERIDONE [Concomitant]
  6. LEVOTHYROX [Concomitant]
  7. PRAVASTATINE [Concomitant]
  8. ALLOPURINOL [Concomitant]
  9. BUDESONIDE [Concomitant]
  10. AERIUS [Concomitant]
  11. AVODART [Concomitant]
  12. DOXAZOSINE [Concomitant]
  13. AVAMYS [Concomitant]

REACTIONS (4)
  - Anaphylactic shock [Unknown]
  - Angioedema [Recovered/Resolved]
  - Dyspnoea [Recovered/Resolved]
  - Laryngospasm [Recovered/Resolved]
